FAERS Safety Report 15119627 (Version 7)
Quarter: 2019Q4

REPORT INFORMATION
  Report Type: Spontaneous
  Country: JP (occurrence: JP)
  Receive Date: 20180709
  Receipt Date: 20191205
  Transmission Date: 20200122
  Serious: Yes (Life-Threatening, Hospitalization, Other)
  Sender: FDA-Public Use
  Company Number: JP-ELI_LILLY_AND_COMPANY-JP201807001428

PATIENT
  Age: 61 Year
  Sex: Female
  Weight: 42 kg

DRUGS (6)
  1. FUROSEMIDE. [Concomitant]
     Active Substance: FUROSEMIDE
     Indication: OEDEMA PERIPHERAL
     Dosage: 20 MG, BID
     Route: 048
     Dates: start: 20180608
  2. SPIRONOLACTONE. [Concomitant]
     Active Substance: SPIRONOLACTONE
     Indication: OEDEMA PERIPHERAL
     Dosage: 25 MG, DAILY
     Route: 048
     Dates: start: 20180608
  3. PACLITAXEL. [Suspect]
     Active Substance: PACLITAXEL
     Indication: GASTRIC CANCER RECURRENT
     Dosage: 105 MG, SINGLE
     Route: 041
     Dates: start: 20180607, end: 20180607
  4. GOSHAJINKIGAN [Concomitant]
     Active Substance: HERBALS
     Indication: PROPHYLAXIS
     Dosage: 2.5 G, TID
     Route: 048
     Dates: start: 20180426, end: 20180617
  5. CYRAMZA [Suspect]
     Active Substance: RAMUCIRUMAB
     Indication: GASTRIC CANCER RECURRENT
     Dosage: 290 MG, SINGLE
     Route: 041
     Dates: start: 20180607, end: 20180607
  6. CAMOSTAT MESILATE [Concomitant]
     Active Substance: CAMOSTAT MESYLATE
     Indication: GASTROOESOPHAGEAL REFLUX DISEASE
     Dosage: 100 MG, TID
     Route: 048
     Dates: start: 20170907

REACTIONS (6)
  - Hepatic necrosis [Recovered/Resolved]
  - Neutrophil count decreased [Recovered/Resolved]
  - Pruritus [Unknown]
  - Toxic skin eruption [Recovered/Resolved]
  - Hepatic encephalopathy [Recovered/Resolved]
  - Portal shunt [Recovered/Resolved]

NARRATIVE: CASE EVENT DATE: 20180607
